FAERS Safety Report 25532616 (Version 1)
Quarter: 2025Q3

REPORT INFORMATION
  Report Type: Other
  Country: CA (occurrence: CA)
  Receive Date: 20250709
  Receipt Date: 20250709
  Transmission Date: 20251020
  Serious: Yes (Death, Hospitalization)
  Sender: TOLMAR
  Company Number: CA-Tolmar-TLM-2025-04348

PATIENT
  Age: 74 Year
  Sex: Male

DRUGS (3)
  1. LEUPROLIDE ACETATE [Suspect]
     Active Substance: LEUPROLIDE ACETATE
     Indication: Prostate cancer
     Route: 030
  2. ELIGARD [Suspect]
     Active Substance: LEUPROLIDE ACETATE
     Indication: Prostate cancer
  3. DOCETAXEL [Concomitant]
     Active Substance: DOCETAXEL
     Indication: Product used for unknown indication

REACTIONS (4)
  - Chest pain [Fatal]
  - Confusional state [Fatal]
  - Death [Fatal]
  - Hypoventilation [Fatal]
